FAERS Safety Report 11115143 (Version 2)
Quarter: 2015Q3

REPORT INFORMATION
  Report Type: Spontaneous
  Country: US (occurrence: US)
  Receive Date: 20150515
  Receipt Date: 20150703
  Transmission Date: 20151125
  Serious: Yes (Other)
  Sender: FDA-Public Use
  Company Number: US-JNJFOC-20150508413

PATIENT
  Sex: Male

DRUGS (1)
  1. IMBRUVICA [Suspect]
     Active Substance: IBRUTINIB
     Indication: CHRONIC LYMPHOCYTIC LEUKAEMIA
     Route: 048

REACTIONS (6)
  - Hernia [Unknown]
  - Renal tubular necrosis [Recovered/Resolved]
  - Haemorrhage [Unknown]
  - Atrial fibrillation [Unknown]
  - Hypotension [Unknown]
  - Pneumonia [Unknown]
